FAERS Safety Report 9277434 (Version 1)
Quarter: 2013Q2

REPORT INFORMATION
  Report Type: Spontaneous
  Country: US (occurrence: US)
  Receive Date: 20130508
  Receipt Date: 20130508
  Transmission Date: 20140414
  Serious: No
  Sender: FDA-Public Use
  Company Number: US-009507513-1305USA001842

PATIENT
  Age: 67 Year
  Sex: Female

DRUGS (3)
  1. SINEMET [Suspect]
     Indication: PARKINSON^S DISEASE
     Dosage: UNK
  2. LINZESS [Interacting]
     Dosage: 290 MICROGRAM, 1 IN 1 D
     Route: 048
     Dates: end: 20130417
  3. LINZESS [Interacting]
     Dosage: 145 MICROGRAM, 1 IN1 D
     Route: 048
     Dates: start: 20130418

REACTIONS (2)
  - Potentiating drug interaction [Not Recovered/Not Resolved]
  - Therapeutic response decreased [Unknown]
